FAERS Safety Report 8596752-X (Version None)
Quarter: 2012Q3

REPORT INFORMATION
  Report Type: 
  Country: None (occurrence: None)
  Receive Date: 20120815
  Receipt Date: 20120807
  Transmission Date: 20120928
  Serious: Yes (Hospitalization)
  Sender: FDA-Public Use
  Company Number: BE-PFIZER INC-2012193390

PATIENT
  Sex: Female
  Weight: 70 kg

DRUGS (5)
  1. GENOTROPIN [Suspect]
     Dosage: 0.4 MG, 7/WK
     Route: 058
     Dates: start: 20031218, end: 20040215
  2. ELTHYRONE [Concomitant]
     Indication: BLOOD THYROID STIMULATING HORMONE DECREASED
     Dosage: UNK
     Dates: start: 20040528
  3. ESTRIOL [Concomitant]
     Indication: BLOOD LUTEINISING HORMONE DECREASED
     Dosage: UNK
     Dates: start: 19940615
  4. ESTRIOL [Concomitant]
     Indication: BLOOD FOLLICLE STIMULATING HORMONE DECREASED
  5. DESMOPRESSIN [Concomitant]
     Indication: BLOOD ANTIDIURETIC HORMONE DECREASED
     Dosage: UNK
     Dates: start: 19850615

REACTIONS (1)
  - SURGERY [None]
